FAERS Safety Report 9996552 (Version 2)
Quarter: 2014Q1

REPORT INFORMATION
  Report Type: Spontaneous
  Country: IT (occurrence: IT)
  Receive Date: 20140311
  Receipt Date: 20140311
  Transmission Date: 20141002
  Serious: Yes (Hospitalization)
  Sender: FDA-Public Use
  Company Number: IT-BRISTOL-MYERS SQUIBB COMPANY-20205589

PATIENT
  Age: 80 Year
  Sex: Male

DRUGS (3)
  1. COUMADIN TABS 5 MG [Suspect]
     Dosage: 1DF: 1 UNIT
     Route: 048
     Dates: start: 20050101, end: 20131212
  2. RAMIPRIL [Suspect]
     Dosage: 1DT: 1 UNIT
     Route: 048
     Dates: start: 20131212
  3. TILDIEM RETARD [Concomitant]
     Dosage: TABLET

REACTIONS (6)
  - Confusional state [Recovering/Resolving]
  - Hypotension [Recovering/Resolving]
  - Malaise [Recovering/Resolving]
  - Presyncope [Recovering/Resolving]
  - Vision blurred [Recovering/Resolving]
  - Chest discomfort [Recovering/Resolving]
